FAERS Safety Report 16247210 (Version 1)
Quarter: 2019Q2

REPORT INFORMATION
  Report Type: Report from Study
  Country: KR (occurrence: KR)
  Receive Date: 20190427
  Receipt Date: 20190427
  Transmission Date: 20190711
  Serious: Yes (Hospitalization)
  Sender: FDA-Public Use
  Company Number: KR-CELLTRION INC.-2019KR020624

PATIENT

DRUGS (24)
  1. DOXORUBICIN [Suspect]
     Active Substance: DOXORUBICIN
     Indication: CHEMOTHERAPY
     Dosage: UNK
     Dates: start: 20190329
  2. VINCRISTINE [Suspect]
     Active Substance: VINCRISTINE
     Indication: CHEMOTHERAPY
     Dosage: UNK
     Dates: start: 20190329
  3. PREDNISOLONE. [Suspect]
     Active Substance: PREDNISOLONE
     Indication: CHEMOTHERAPY
     Dosage: UNK
     Dates: start: 20190329
  4. NEURONTIN [Concomitant]
     Active Substance: GABAPENTIN
     Indication: SPINAL STENOSIS
     Dosage: 100 MG, TID
     Route: 048
     Dates: start: 20190330, end: 20190331
  5. COZAAR [Concomitant]
     Active Substance: LOSARTAN POTASSIUM
     Indication: HYPERTENSION
     Dosage: 1 TAB, QD
     Route: 048
     Dates: start: 20190305
  6. EMEND [Concomitant]
     Active Substance: APREPITANT
     Indication: PROPHYLAXIS OF NAUSEA AND VOMITING
     Dosage: 80 MG, QD
     Route: 048
     Dates: start: 20190329, end: 20190331
  7. DUPHALAC [Concomitant]
     Active Substance: LACTULOSE
     Dosage: 30 ML, QD
     Route: 048
     Dates: start: 20190329, end: 20190330
  8. TASNA [Concomitant]
     Indication: GASTRITIS PROPHYLAXIS
     Dosage: 10 G, QD (GARGLE)
     Route: 050
     Dates: start: 20190329, end: 20190412
  9. CECLONAC [Concomitant]
     Indication: SPINAL STENOSIS
     Dosage: 100 MG, BID
     Route: 048
     Dates: start: 20190305, end: 20190328
  10. ASPIRIN. [Concomitant]
     Active Substance: ASPIRIN
     Indication: HYPERTENSION
     Dosage: 100 MG, QD
     Route: 048
     Dates: start: 20190305
  11. MAGMIL [Concomitant]
     Active Substance: MAGNESIUM HYDROXIDE
     Indication: CONSTIPATION
     Dosage: 500 TAB, TID
     Route: 048
     Dates: start: 20190401, end: 20190401
  12. MACPERAN [Concomitant]
     Active Substance: METOCLOPRAMIDE HYDROCHLORIDE
     Indication: PROPHYLAXIS OF NAUSEA AND VOMITING
     Dosage: 1 TAB, BID
     Route: 048
     Dates: start: 20190401, end: 20190401
  13. TENORMIN [Concomitant]
     Active Substance: ATENOLOL
     Indication: HYPERTENSION
     Dosage: 50 TAB, QD
     Route: 048
     Dates: start: 20190305
  14. AMOXICILLIN. [Concomitant]
     Active Substance: AMOXICILLIN
     Indication: INFECTION PROPHYLAXIS
     Dosage: 500 MG, TID
     Route: 048
     Dates: start: 20190408, end: 20190414
  15. TRUXIMA [Suspect]
     Active Substance: RITUXIMAB-ABBS
     Indication: DIFFUSE LARGE B-CELL LYMPHOMA
     Dosage: 559 MG, 3 WEEKS
     Route: 042
     Dates: start: 20190329, end: 20190329
  16. CYCLOPHOSPHAMIDE. [Suspect]
     Active Substance: CYCLOPHOSPHAMIDE
     Indication: CHEMOTHERAPY
     Dosage: UNK
     Dates: start: 20190329
  17. DUPHALAC [Concomitant]
     Active Substance: LACTULOSE
     Indication: CONSTIPATION
     Dosage: 20 ML, QD
     Route: 048
     Dates: start: 20190307, end: 20190307
  18. MYPOL [Concomitant]
     Indication: SPINAL STENOSIS
     Dosage: 1 CAP, TID
     Route: 048
     Dates: start: 20190329, end: 20190401
  19. LACIDOFIL [LACTOBACILLUS ACIDOPHILUS;LACTOBACILLUS RHAMNOSUS] [Concomitant]
     Indication: CONSTIPATION PROPHYLAXIS
     Dosage: 1 CAP, BID
     Route: 048
     Dates: start: 20190305, end: 20190412
  20. EBASTEL [Concomitant]
     Active Substance: EBASTINE
     Indication: RHINORRHOEA
     Dosage: 1 TAB, QD
     Route: 048
     Dates: start: 20190330, end: 20190401
  21. VENITOL [Concomitant]
     Indication: HAEMORRHOIDS
     Dosage: 2 TAB, BID
     Route: 048
     Dates: start: 20190402, end: 20190412
  22. BANAN [Concomitant]
     Active Substance: CEFPODOXIME PROXETIL
     Indication: PROPHYLAXIS
     Dosage: 100 MG, BID
     Route: 048
     Dates: start: 20190328, end: 20190328
  23. LANSTON [Concomitant]
     Active Substance: LANSOPRAZOLE
     Indication: GASTRITIS PROPHYLAXIS
     Dosage: 15 MG, QD
     Route: 048
     Dates: start: 20190327, end: 20190401
  24. VARIDASE [Concomitant]
     Indication: INFECTION PROPHYLAXIS
     Dosage: 2 TAB, BID
     Route: 048
     Dates: start: 20190328, end: 20190328

REACTIONS (1)
  - Febrile neutropenia [Recovered/Resolved]

NARRATIVE: CASE EVENT DATE: 20190405
